FAERS Safety Report 4662926-3 (Version None)
Quarter: 2005Q2

REPORT INFORMATION
  Report Type: 
  Country: None (occurrence: None)
  Receive Date: 20050511
  Receipt Date: 20050405
  Transmission Date: 20051028
  Serious: Yes (Other)
  Sender: FDA-Public Use
  Company Number: 401076

PATIENT
  Age: 37 Year
  Sex: Female

DRUGS (2)
  1. PEGASYS [Suspect]
     Dates: start: 20050105, end: 20050403
  2. COPEGUS [Suspect]
     Dosage: ORAL
     Route: 048
     Dates: start: 20050105, end: 20050403

REACTIONS (4)
  - PHARYNGOLARYNGEAL PAIN [None]
  - SELF-INJURIOUS IDEATION [None]
  - STOMATITIS [None]
  - SUICIDAL IDEATION [None]
